FAERS Safety Report 7616693-1 (Version None)
Quarter: 2011Q3

REPORT INFORMATION
  Report Type: 
  Country: None (occurrence: None)
  Receive Date: 20110717
  Receipt Date: 20110711
  Transmission Date: 20111222
  Serious: Yes (Death)
  Sender: FDA-Public Use
  Company Number: PHHY2011BD62518

PATIENT
  Age: 74 Year
  Sex: Male

DRUGS (2)
  1. ZOLEDRONOC ACID [Suspect]
     Indication: OSTEOPOROSIS
     Dosage: UNK UKN, ONCE YEARLY
     Route: 042
     Dates: start: 20101030
  2. XOLAIR [Suspect]
     Indication: ASTHMA
     Dosage: UNK UKN, QMO
     Route: 042
     Dates: start: 20101030

REACTIONS (1)
  - RESPIRATORY DISORDER [None]
